FAERS Safety Report 4830088-5 (Version None)
Quarter: 2005Q4

REPORT INFORMATION
  Report Type: 
  Country: None (occurrence: None)
  Receive Date: 20051114
  Receipt Date: 20051031
  Transmission Date: 20060501
  Serious: Yes (Hospitalization, Other)
  Sender: FDA-Public Use
  Company Number: 216089

PATIENT
  Age: 69 Year
  Sex: Male
  Weight: 47 kg

DRUGS (4)
  1. RITUXIMAB (RITUXIMAB) CONC FOR SOLUTION FOR INFUSION [Suspect]
     Indication: CHRONIC LYMPHOCYTIC LEUKAEMIA
     Dosage: 500 MG/M2, UNK; INTRAVENOUS
     Route: 042
     Dates: start: 20040308, end: 20040802
  2. FLUDARABINE PHOSPHATE [Suspect]
     Indication: CHRONIC LYMPHOCYTIC LEUKAEMIA
     Dosage: 25 MG/M2, UNK; INTRAVENOUS
     Route: 042
     Dates: start: 20040309, end: 20040804
  3. CYCLOPHOSPHAMIDE [Suspect]
     Indication: CHRONIC LYMPHOCYTIC LEUKAEMIA
     Dosage: 250 MG/M2, UNK; INTRAVENOUS
     Route: 042
     Dates: start: 20040309, end: 20040804
  4. BACTRIM (SULFAMETHOXAZOLE, TRIMETHOPRIUM) [Concomitant]

REACTIONS (5)
  - ABDOMINAL DISCOMFORT [None]
  - BLOOD IMMUNOGLOBULIN M INCREASED [None]
  - GENERAL PHYSICAL HEALTH DETERIORATION [None]
  - LUNG NEOPLASM [None]
  - PULMONARY TUBERCULOSIS [None]
